FAERS Safety Report 4919260-3 (Version None)
Quarter: 2006Q1

REPORT INFORMATION
  Report Type: 
  Country: None (occurrence: None)
  Receive Date: 20060113
  Receipt Date: 20051206
  Transmission Date: 20060701
  Serious: No
  Sender: FDA-Public Use
  Company Number: 2005SP004295

PATIENT
  Age: 82 Year
  Sex: Male

DRUGS (2)
  1. LUNESTA [Suspect]
     Dosage: SEE IMAGE
     Route: 048
     Dates: start: 20051203, end: 20051203
  2. LUNESTA [Suspect]
     Dosage: SEE IMAGE
     Route: 048
     Dates: start: 20051205

REACTIONS (3)
  - DIZZINESS [None]
  - NAUSEA [None]
  - SOMNOLENCE [None]
